FAERS Safety Report 6030795-5 (Version None)
Quarter: 2009Q1

REPORT INFORMATION
  Report Type: 
  Country: None (occurrence: None)
  Receive Date: 20090107
  Receipt Date: 20081230
  Transmission Date: 20090719
  Serious: Yes (Other)
  Sender: FDA-Public Use
  Company Number: PHEH2008US11494

PATIENT
  Sex: Female

DRUGS (1)
  1. RECLAST [Suspect]
     Dosage: UNK
     Dates: start: 20081226

REACTIONS (5)
  - ABASIA [None]
  - FALL [None]
  - NAUSEA [None]
  - SWELLING [None]
  - URINARY INCONTINENCE [None]
